FAERS Safety Report 5454838-2 (Version None)
Quarter: 2007Q3

REPORT INFORMATION
  Report Type: 
  Country: None (occurrence: None)
  Receive Date: 20070917
  Receipt Date: 20060926
  Transmission Date: 20080115
  Serious: Yes (Other)
  Sender: FDA-Public Use
  Company Number: US-ASTRAZENECA-2006UW18738

PATIENT
  Age: 8 Year

DRUGS (2)
  1. SEROQUEL [Suspect]
     Route: 048
  2. RISPERIDONE [Concomitant]

REACTIONS (1)
  - ELECTROCARDIOGRAM QT INTERVAL [None]
